FAERS Safety Report 21849871 (Version 1)
Quarter: 2023Q1

REPORT INFORMATION
  Report Type: Other
  Country: GR (occurrence: GR)
  Receive Date: 20230111
  Receipt Date: 20230111
  Transmission Date: 20230417
  Serious: Yes (Life-Threatening, Hospitalization)
  Sender: FDA-Public Use
  Company Number: GR-BoehringerIngelheim-2023-BI-211723

PATIENT
  Age: 39 Year
  Sex: Female

DRUGS (1)
  1. ALTEPLASE [Suspect]
     Active Substance: ALTEPLASE
     Indication: Pulmonary embolism
     Dosage: A BOLUS DOSE OF 5 MG AND CONTINUED WITH A SLOW INFUSION RATE UNDER CONTINUOUS US MONITORING. A TOTAL
     Route: 042

REACTIONS (5)
  - Procedural haemorrhage [Unknown]
  - Anaemia [Recovered/Resolved]
  - Thrombocytopenia [Recovered/Resolved]
  - Metabolic acidosis [Recovered/Resolved]
  - Haemoperitoneum [Unknown]
